FAERS Safety Report 8282928-8 (Version None)
Quarter: 2012Q2

REPORT INFORMATION
  Report Type: 
  Country: None (occurrence: None)
  Receive Date: 20120413
  Receipt Date: 20120330
  Transmission Date: 20120825
  Serious: Yes (Other)
  Sender: FDA-Public Use
  Company Number: US-ROCHE-1055194

PATIENT
  Sex: Female
  Weight: 44.038 kg

DRUGS (5)
  1. ZELBORAF [Suspect]
     Indication: MALIGNANT MELANOMA
     Route: 048
     Dates: start: 20111001
  2. IBUPROFEN [Concomitant]
  3. HYDROCODONE [Concomitant]
     Dosage: 7.5 APAP
     Dates: start: 20110901
  4. ONDANSETRON [Concomitant]
     Route: 048
     Dates: start: 20110401
  5. DIPHENOXYLATE HCL + ATROPINE SULFATE [Concomitant]
     Route: 048

REACTIONS (7)
  - DIARRHOEA [None]
  - SKIN PAPILLOMA [None]
  - OEDEMA PERIPHERAL [None]
  - SUNBURN [None]
  - DECREASED APPETITE [None]
  - ARTHRALGIA [None]
  - NEOPLASM [None]
